FAERS Safety Report 17916031 (Version 1)
Quarter: 2020Q2

REPORT INFORMATION
  Report Type: Spontaneous
  Country: US (occurrence: US)
  Receive Date: 20200618
  Receipt Date: 20200618
  Transmission Date: 20200714
  Serious: No
  Sender: FDA-Public Use
  Company Number: None

PATIENT
  Age: 47 Year
  Sex: Female
  Weight: 70.65 kg

DRUGS (2)
  1. FLUCONAZOLE 150MG TABLETS [Suspect]
     Active Substance: FLUCONAZOLE
     Indication: RASH
     Route: 048
     Dates: start: 20200618, end: 20200618
  2. FLUCONAZOLE 150MG TABLETS [Suspect]
     Active Substance: FLUCONAZOLE
     Indication: FUNGAL INFECTION
     Route: 048
     Dates: start: 20200618, end: 20200618

REACTIONS (3)
  - Feeling hot [None]
  - Erythema [None]
  - Lip swelling [None]

NARRATIVE: CASE EVENT DATE: 20200618
